FAERS Safety Report 8455519-3 (Version None)
Quarter: 2012Q2

REPORT INFORMATION
  Report Type: 
  Country: None (occurrence: None)
  Receive Date: 20120621
  Receipt Date: 20120618
  Transmission Date: 20120825
  Serious: Yes (Hospitalization)
  Sender: FDA-Public Use
  Company Number: IT-PFIZER INC-2012124688

PATIENT
  Age: 6 Year
  Sex: Male

DRUGS (2)
  1. XANAX [Suspect]
     Dosage: 15 GTT, TOTAL DOSE
     Route: 048
     Dates: start: 20120429, end: 20120429
  2. FENISTIL [Suspect]

REACTIONS (2)
  - DRUG ADMINISTRATION ERROR [None]
  - BRADYPHRENIA [None]
